FAERS Safety Report 18774394 (Version 2)
Quarter: 2021Q1

REPORT INFORMATION
  Report Type: Spontaneous
  Country: IN (occurrence: IN)
  Receive Date: 20210122
  Receipt Date: 20210218
  Transmission Date: 20210419
  Serious: Yes (Other)
  Sender: FDA-Public Use
  Company Number: IN-INFO-001162

PATIENT
  Age: 50 Year
  Sex: Male
  Weight: 80 kg

DRUGS (1)
  1. METRONIDAZOLE. [Suspect]
     Active Substance: METRONIDAZOLE
     Indication: HEPATIC AMOEBIASIS
     Dosage: 1.5 MG/DAY I.V. DIVIDED OVER 3 DOSES
     Route: 042
     Dates: start: 20200608, end: 20200617

REACTIONS (2)
  - Off label use [Recovered/Resolved]
  - Mania [Recovered/Resolved]

NARRATIVE: CASE EVENT DATE: 20200615
